FAERS Safety Report 12818620 (Version 1)
Quarter: 2016Q4

REPORT INFORMATION
  Report Type: Report from Study
  Country: CA (occurrence: CA)
  Receive Date: 20161006
  Receipt Date: 20161006
  Transmission Date: 20170207
  Serious: No
  Sender: FDA-Public Use
  Company Number: CA-TOLMAR, INC.-2016CA005519

PATIENT

DRUGS (2)
  1. ELIGARD [Suspect]
     Active Substance: LEUPROLIDE ACETATE
     Dosage: 30 MG, EVERY FOUR MONTHSUNK
     Route: 058
  2. ELIGARD [Suspect]
     Active Substance: LEUPROLIDE ACETATE
     Indication: PROSTATE CANCER
     Dosage: 30 MG, EVERY FOUR MONTHS
     Route: 058

REACTIONS (2)
  - Syringe issue [Unknown]
  - Medication error [Unknown]

NARRATIVE: CASE EVENT DATE: 20160531
